FAERS Safety Report 7374838-5 (Version None)
Quarter: 2011Q1

REPORT INFORMATION
  Report Type: 
  Country: None (occurrence: None)
  Receive Date: 20110325
  Receipt Date: 20110318
  Transmission Date: 20110831
  Serious: Yes (Death, Life-Threatening, Hospitalization, Disabling)
  Sender: FDA-Public Use
  Company Number: JP-PFIZER INC-2010171391

PATIENT
  Age: 68 Year
  Sex: Female

DRUGS (10)
  1. TAKEPRON [Concomitant]
     Dosage: 15 MG, 1X/DAY
     Dates: start: 20101207, end: 20101210
  2. ALDACTONE [Concomitant]
     Dosage: 25 MG, 1X/DAY
     Dates: start: 20101207, end: 20101210
  3. MORPHINE HYDROCHLORIDE [Concomitant]
     Dosage: 10-20 MG, AS NEEDED
     Dates: start: 20101201, end: 20101210
  4. FENTANYL CITRATE [Concomitant]
     Dosage: 1 MG, 1X/DAY
     Dates: start: 20101109, end: 20101212
  5. FENTANYL CITRATE [Concomitant]
     Dosage: 4 MG, 1X/DAY
     Dates: start: 20101109, end: 20101212
  6. METHYLNALTREXONE BROMIDE [Suspect]
     Indication: CONSTIPATION
     Dosage: 0.3 MG/KG, SINGLE
     Route: 058
     Dates: start: 20101210, end: 20101210
  7. LASIX [Concomitant]
     Dosage: 40 MG, 1X/DAY
     Dates: start: 20101207, end: 20101210
  8. BETAMETHASONE [Concomitant]
     Dosage: 1 MG, 1X/DAY
     Dates: start: 20101102, end: 20101210
  9. NOVAMIN [Concomitant]
     Dosage: 5 MG, 1X/DAY
     Dates: start: 20101203, end: 20101210
  10. NAIXAN [Concomitant]
     Dosage: 100 MG, 1X/DAY
     Dates: start: 20101102, end: 20101210

REACTIONS (15)
  - THROMBOCYTOPENIA [None]
  - ASPARTATE AMINOTRANSFERASE INCREASED [None]
  - SHOCK [None]
  - BLOOD CREATININE INCREASED [None]
  - DRUG WITHDRAWAL SYNDROME [None]
  - BACK PAIN [None]
  - CHEST PAIN [None]
  - MALAISE [None]
  - ABDOMINAL PAIN [None]
  - BLOOD CREATINE PHOSPHOKINASE INCREASED [None]
  - ALANINE AMINOTRANSFERASE INCREASED [None]
  - RENAL FAILURE ACUTE [None]
  - DISSEMINATED INTRAVASCULAR COAGULATION [None]
  - BLOOD BILIRUBIN INCREASED [None]
  - ACUTE HEPATIC FAILURE [None]
